FAERS Safety Report 8423695-4 (Version None)
Quarter: 2012Q2

REPORT INFORMATION
  Report Type: 
  Country: None (occurrence: None)
  Receive Date: 20120608
  Receipt Date: 20120109
  Transmission Date: 20120825
  Serious: No
  Sender: FDA-Public Use
  Company Number: US-ASTRAZENECA-2012SE01811

PATIENT
  Age: 78 Year
  Sex: Female

DRUGS (5)
  1. ATACAND [Suspect]
     Route: 048
  2. NEXIUM [Suspect]
     Route: 048
  3. SEROQUEL [Suspect]
     Route: 048
  4. CRESTOR [Suspect]
     Route: 048
  5. EXELON [Suspect]
     Route: 065

REACTIONS (2)
  - DRUG HYPERSENSITIVITY [None]
  - PRURITUS [None]
